FAERS Safety Report 10273222 (Version 1)
Quarter: 2014Q2

REPORT INFORMATION
  Report Type: Spontaneous
  Country: US (occurrence: None)
  Receive Date: 20140630
  Receipt Date: 20140630
  Transmission Date: 20141212
  Serious: Yes (Life-Threatening, Hospitalization, Disabling)
  Sender: FDA-Public Use
  Company Number: None

PATIENT
  Age: 24 Year
  Sex: Male
  Weight: 73.2 kg

DRUGS (2)
  1. FONDAPARINUX [Suspect]
     Indication: DEEP VEIN THROMBOSIS
     Dosage: 0.6 ML  EVERY DAY  SQ
     Route: 058
     Dates: start: 20140318, end: 20140625
  2. HEPARIN [Suspect]
     Indication: DEEP VEIN THROMBOSIS
     Dosage: 11.4 ML  PER HOUR  IV
     Route: 042
     Dates: start: 20140617, end: 20140621

REACTIONS (2)
  - Paraplegia [None]
  - Extradural haematoma [None]
